FAERS Safety Report 5420409-7 (Version None)
Quarter: 2007Q3

REPORT INFORMATION
  Report Type: 
  Country: None (occurrence: None)
  Receive Date: 20070816
  Receipt Date: 20070803
  Transmission Date: 20080115
  Serious: Yes (Hospitalization, Congenital Anomaly)
  Sender: FDA-Public Use
  Company Number: 8013248

PATIENT
  Sex: Male
  Weight: 6.9 kg

DRUGS (6)
  1. KEPPRA [Suspect]
     Dosage: 2000 MG /D TRP
     Route: 064
     Dates: start: 20040901, end: 20050516
  2. ZYRTEC [Suspect]
     Indication: HYPERSENSITIVITY
     Dosage: 10 MG /D TRP
     Route: 064
  3. DILANTIN [Suspect]
     Dosage: 400 MG /D TRP
     Route: 064
  4. DILANTIN [Suspect]
     Dosage: 10 MG 2/D TRP
     Route: 064
  5. PAXIL [Suspect]
     Indication: DEPRESSION
     Dosage: 37.5 MG /D TRP
     Route: 064
  6. SEROQUEL [Suspect]
     Indication: SOMNOLENCE
     Dosage: 50 MG PRN TRP
     Route: 064

REACTIONS (6)
  - ADRENOGENITAL SYNDROME [None]
  - ARNOLD-CHIARI MALFORMATION [None]
  - DEVELOPMENTAL DELAY [None]
  - DRUG EXPOSURE DURING PREGNANCY [None]
  - PREMATURE BABY [None]
  - SPEECH DISORDER DEVELOPMENTAL [None]
